FAERS Safety Report 14890301 (Version 3)
Quarter: 2018Q4

REPORT INFORMATION
  Report Type: Spontaneous
  Country: US (occurrence: US)
  Receive Date: 20180514
  Receipt Date: 20181221
  Transmission Date: 20190204
  Serious: No
  Sender: FDA-Public Use
  Company Number: US-PFIZER INC-2018193085

PATIENT
  Sex: Female

DRUGS (1)
  1. METHOTREXATE SODIUM. [Suspect]
     Active Substance: METHOTREXATE SODIUM
     Dosage: UNK
     Dates: start: 201101, end: 201504

REACTIONS (1)
  - Drug intolerance [Unknown]
